FAERS Safety Report 4711848-8 (Version None)
Quarter: 2005Q2

REPORT INFORMATION
  Report Type: 
  Country: None (occurrence: None)
  Receive Date: 20050629
  Receipt Date: 20050401
  Transmission Date: 20051028
  Serious: No
  Sender: FDA-Public Use
  Company Number: 05P-163-0296230-00

PATIENT
  Age: 71 Year
  Sex: Female

DRUGS (13)
  1. HUMIRA [Suspect]
     Indication: RHEUMATOID ARTHRITIS
     Dosage: 40 MG, 1 IN 2 WK, SUBCUTANEOUS
     Route: 058
     Dates: start: 20040101, end: 20040601
  2. HUMIRA [Suspect]
     Indication: RHEUMATOID ARTHRITIS
     Dosage: 40 MG, 1 IN 2 WK, SUBCUTANEOUS
     Route: 058
     Dates: start: 20040901, end: 20050301
  3. HYDROXYCHLOROQUINE PHOSPHATE [Concomitant]
  4. FOLIC ACID [Concomitant]
  5. MULTI-VITAMINS [Concomitant]
  6. PHENOBARBITAL SODIUM 100MG CAP [Concomitant]
  7. PHENYTOIN SODIUM [Concomitant]
  8. TOCOPHEROL CONCENTRATE CAP [Concomitant]
  9. ASCORBIC ACID [Concomitant]
  10. CALCIUM GLUCONATE [Concomitant]
  11. PREFEST [Concomitant]
  12. FLUTICASONE PROPIONATE [Concomitant]
  13. INFLUENZA VACCINE [Concomitant]

REACTIONS (4)
  - APHONIA [None]
  - COUGH [None]
  - INCREASED UPPER AIRWAY SECRETION [None]
  - RASH [None]
